FAERS Safety Report 16463473 (Version 1)
Quarter: 2019Q2

REPORT INFORMATION
  Report Type: Spontaneous
  Country: US (occurrence: US)
  Receive Date: 20190621
  Receipt Date: 20190621
  Transmission Date: 20190711
  Serious: No
  Sender: FDA-Public Use
  Company Number: US-SUNOVION-2019SUN002478

PATIENT

DRUGS (5)
  1. TYLENOL [Concomitant]
     Active Substance: ACETAMINOPHEN
     Indication: HEADACHE
     Dosage: 500 MG, AS NECESSARY
     Route: 048
  2. LITHIUM. [Concomitant]
     Active Substance: LITHIUM
     Dosage: 900 MG, HS
     Route: 048
  3. GABAPENTIN. [Concomitant]
     Active Substance: GABAPENTIN
     Indication: BACK PAIN
     Dosage: 300 MG, TID
     Route: 048
  4. LATUDA [Suspect]
     Active Substance: LURASIDONE HYDROCHLORIDE
     Indication: DEPRESSION
     Dosage: 20 MG, HS
     Route: 048
     Dates: start: 201905, end: 201905
  5. LATUDA [Suspect]
     Active Substance: LURASIDONE HYDROCHLORIDE
     Dosage: 40 MG, HS
     Route: 048
     Dates: start: 201905

REACTIONS (9)
  - Insomnia [Unknown]
  - Off label use [Unknown]
  - Depression [Unknown]
  - Affect lability [Unknown]
  - Agitation [Unknown]
  - Feeling abnormal [Unknown]
  - Product administration error [Unknown]
  - Mania [Unknown]
  - Crying [Unknown]

NARRATIVE: CASE EVENT DATE: 201905
